FAERS Safety Report 15725659 (Version 1)
Quarter: 2018Q4

REPORT INFORMATION
  Report Type: Report from Study
  Country: IT (occurrence: IT)
  Receive Date: 20181215
  Receipt Date: 20181215
  Transmission Date: 20190205
  Serious: Yes (Other)
  Sender: FDA-Public Use
  Company Number: IT-TEVA-2018-IT-985990

PATIENT
  Age: 75 Year
  Sex: Female

DRUGS (7)
  1. CARDICOR 2,5 MG COMPRESSE RIVESTITE CON FILM [Concomitant]
     Active Substance: BISOPROLOL FUMARATE
  2. KETOPROFEN. [Suspect]
     Active Substance: KETOPROFEN
     Indication: PAIN IN EXTREMITY
     Dosage: 2 DOSAGE FORMS DAILY;
     Route: 048
  3. LERCANIDIPINE [Concomitant]
     Active Substance: LERCANIDIPINE
  4. PANTOPRAZOLE SODIUM. [Concomitant]
     Active Substance: PANTOPRAZOLE SODIUM
  5. CLOPIDOGREL [Concomitant]
     Active Substance: CLOPIDOGREL BISULFATE
  6. PRITORPLUS 80 MG/25 MG TABLETS [Concomitant]
  7. DEURSIL [Concomitant]
     Active Substance: URSODIOL

REACTIONS (4)
  - Haematochezia [Recovering/Resolving]
  - Abdominal pain upper [Recovering/Resolving]
  - Gastritis erosive [Recovering/Resolving]
  - Erosive duodenitis [Recovering/Resolving]

NARRATIVE: CASE EVENT DATE: 20181024
